FAERS Safety Report 8076030-8 (Version None)
Quarter: 2012Q1

REPORT INFORMATION
  Report Type: 
  Country: None (occurrence: None)
  Receive Date: 20120127
  Receipt Date: 20110503
  Transmission Date: 20120608
  Serious: No
  Sender: FDA-Public Use
  Company Number: US-GLAXOSMITHKLINE-A0927188A

PATIENT
  Age: 41 Year
  Sex: Male

DRUGS (2)
  1. WELLBUTRIN XL [Suspect]
     Indication: ANXIETY
     Dosage: 1TAB PER DAY
     Route: 048
     Dates: start: 20110428
  2. PRILOSEC [Concomitant]

REACTIONS (1)
  - DIZZINESS [None]
